FAERS Safety Report 17976566 (Version 2)
Quarter: 2020Q3

REPORT INFORMATION
  Report Type: Report from Study
  Country: NL (occurrence: NL)
  Receive Date: 20200703
  Receipt Date: 20200910
  Transmission Date: 20201103
  Serious: Yes (Hospitalization)
  Sender: FDA-Public Use
  Company Number: NL-BIOGEN-2020BI00892995

PATIENT
  Age: 53 Year
  Sex: Female

DRUGS (5)
  1. AVONEX PEN [Suspect]
     Active Substance: INTERFERON BETA-1A
     Indication: MULTIPLE SCLEROSIS
     Route: 030
     Dates: start: 20150509
  2. INSULIN [Concomitant]
     Active Substance: INSULIN NOS
     Indication: DIABETES MELLITUS
     Route: 065
  3. AVONEX PEN [Suspect]
     Active Substance: INTERFERON BETA-1A
  4. AVONEX PEN [Suspect]
     Active Substance: INTERFERON BETA-1A
  5. AVONEX PEN [Suspect]
     Active Substance: INTERFERON BETA-1A

REACTIONS (3)
  - Multiple sclerosis relapse [Not Recovered/Not Resolved]
  - Enteritis infectious [Not Recovered/Not Resolved]
  - Urinary tract infection [Not Recovered/Not Resolved]

NARRATIVE: CASE EVENT DATE: 20200229
